FAERS Safety Report 11590540 (Version 1)
Quarter: 2015Q4

REPORT INFORMATION
  Report Type: Spontaneous
  Country: BE (occurrence: BE)
  Receive Date: 20151002
  Receipt Date: 20151002
  Transmission Date: 20160304
  Serious: Yes (Death, Other)
  Sender: FDA-Public Use
  Company Number: BE-GLAXOSMITHKLINE-BE2015GSK141154

PATIENT
  Age: 51 Year
  Sex: Female

DRUGS (1)
  1. PAZOPANIB [Suspect]
     Active Substance: PAZOPANIB
     Indication: SARCOMA
     Dosage: UNK

REACTIONS (4)
  - Cardiac failure acute [Fatal]
  - Dyspnoea [Not Recovered/Not Resolved]
  - Brain natriuretic peptide abnormal [Unknown]
  - Fatigue [Not Recovered/Not Resolved]
